FAERS Safety Report 21573659 (Version 1)
Quarter: 2022Q4

REPORT INFORMATION
  Report Type: Spontaneous
  Country: IT (occurrence: IT)
  Receive Date: 20221109
  Receipt Date: 20221109
  Transmission Date: 20230112
  Serious: Yes (Hospitalization)
  Sender: FDA-Public Use
  Company Number: IT-009507513-2205ITA001519

PATIENT
  Age: 31 Year
  Sex: Female

DRUGS (1)
  1. INTERFERON ALFA-2B [Suspect]
     Active Substance: INTERFERON ALFA-2B
     Indication: Chronic myeloid leukaemia
     Dosage: 1.5 MU, INCREASING DOSAGE TO 3.000.000 AND THEN 6.000.000
     Dates: start: 20170712, end: 201803

REACTIONS (3)
  - Platelet count increased [Unknown]
  - Pyrexia [Unknown]
  - Maternal exposure during pregnancy [Recovered/Resolved]

NARRATIVE: CASE EVENT DATE: 20180315
